FAERS Safety Report 14803130 (Version 4)
Quarter: 2019Q1

REPORT INFORMATION
  Report Type: Report from Study
  Country: DE (occurrence: DE)
  Receive Date: 20180425
  Receipt Date: 20190126
  Transmission Date: 20190417
  Serious: Yes (Hospitalization, Other)
  Sender: FDA-Public Use
  Company Number: PHHY2018DE066392

PATIENT
  Sex: Male
  Weight: 107 kg

DRUGS (15)
  1. EPLERON [Suspect]
     Active Substance: EPLERENONE
     Indication: PRODUCT USED FOR UNKNOWN INDICATION
     Dosage: 25 MG, QD
     Route: 048
     Dates: start: 201711, end: 201712
  2. RAMIPRIL 1A PHARMA [Concomitant]
     Active Substance: RAMIPRIL
     Indication: PRODUCT USED FOR UNKNOWN INDICATION
     Dosage: 2.5 MG, QD
     Route: 048
     Dates: start: 20170710, end: 20180201
  3. ENTRESTO [Interacting]
     Active Substance: SACUBITRIL\VALSARTAN
     Dosage: 200 MG, QD
     Route: 048
     Dates: start: 2016, end: 2016
  4. BISOPROLOL 1A PHARMA [Suspect]
     Active Substance: BISOPROLOL
     Indication: PRODUCT USED FOR UNKNOWN INDICATION
     Dosage: 5 MG, QD
     Route: 048
     Dates: start: 2014
  5. XARELTO [Suspect]
     Active Substance: RIVAROXABAN
     Indication: PRODUCT USED FOR UNKNOWN INDICATION
     Dosage: 20 MG, QD
     Route: 048
     Dates: start: 2015, end: 2016
  6. SPIRONOLACTONE. [Concomitant]
     Active Substance: SPIRONOLACTONE
     Indication: PRODUCT USED FOR UNKNOWN INDICATION
     Dosage: 25 MG, QD
     Route: 048
     Dates: start: 20180411
  7. ULTIBRO [Concomitant]
     Active Substance: GLYCOPYRRONIUM\INDACATEROL
     Indication: PRODUCT USED FOR UNKNOWN INDICATION
     Dosage: 85 MG, QD
     Route: 048
     Dates: start: 201802
  8. ENTRESTO [Interacting]
     Active Substance: SACUBITRIL\VALSARTAN
     Dosage: 1 DF (SACUBITRIL 49 MG AND VALSARTAN 51 MG), UNK
     Route: 065
     Dates: start: 20180507, end: 20180512
  9. BISOPROLOL 1A PHARMA [Suspect]
     Active Substance: BISOPROLOL
     Dosage: UNK
     Route: 065
  10. ENTRESTO [Interacting]
     Active Substance: SACUBITRIL\VALSARTAN
     Dosage: 1 DF (SACUBITRIL 24 MG AND VALSARTAN 26 MG), UNK
     Route: 048
     Dates: start: 20180216, end: 20180506
  11. MARCUMAR [Concomitant]
     Active Substance: PHENPROCOUMON
     Indication: PRODUCT USED FOR UNKNOWN INDICATION
     Dosage: 3 MG, QD
     Route: 048
     Dates: start: 20180411
  12. ENTRESTO [Interacting]
     Active Substance: SACUBITRIL\VALSARTAN
     Dosage: 1 DF (SACUBITRIL 24 MG AND VALSARTAN 26 MG), UNK
     Route: 065
     Dates: start: 20180513
  13. ENTRESTO [Suspect]
     Active Substance: SACUBITRIL\VALSARTAN
     Indication: CARDIAC FAILURE CHRONIC
     Dosage: 100 MG (48 MG OF SACUBITRIL/51 MG OF VALSARTAN AND 97 MG OF SACUBITRIL AND 103 MG OF VALSARTAN), QD
     Route: 048
     Dates: start: 2015, end: 2015
  14. ATORVASTATIN 1A PHARMA [Suspect]
     Active Substance: ATORVASTATIN
     Indication: BLOOD CHOLESTEROL INCREASED
     Dosage: 20 MG, QD
     Route: 048
     Dates: start: 201802, end: 20180404
  15. TORASEMID 1A PHARMA [Interacting]
     Active Substance: TORSEMIDE
     Indication: PRODUCT USED FOR UNKNOWN INDICATION
     Dosage: 10 MG, QD
     Route: 048
     Dates: start: 2014, end: 20180411

REACTIONS (28)
  - Lung infection [Recovered/Resolved]
  - Malaise [Not Recovered/Not Resolved]
  - Blood pressure decreased [Not Recovered/Not Resolved]
  - Lung disorder [Not Recovered/Not Resolved]
  - Weight decreased [Unknown]
  - Arrhythmia [Recovering/Resolving]
  - Cardiac flutter [Recovering/Resolving]
  - Gastrointestinal disorder [Unknown]
  - Dyspnoea [Not Recovered/Not Resolved]
  - Vision blurred [Recovering/Resolving]
  - Haemorrhage [Recovered/Resolved]
  - Chronic obstructive pulmonary disease [Not Recovered/Not Resolved]
  - Drug intolerance [Recovered/Resolved]
  - Oedema peripheral [Unknown]
  - Gastrointestinal disorder [Recovered/Resolved]
  - Drug interaction [Unknown]
  - Coronary artery disease [Unknown]
  - Haemorrhoids [Recovered/Resolved]
  - Heart rate increased [Recovering/Resolving]
  - Somatic symptom disorder [Unknown]
  - Mitral valve prolapse [Recovered/Resolved]
  - Pneumothorax [Recovered/Resolved]
  - Arthropathy [Recovered/Resolved]
  - Hyperhidrosis [Unknown]
  - Umbilical hernia [Recovering/Resolving]
  - Fatigue [Unknown]
  - Constipation [Recovered/Resolved]
  - Autonomic nervous system imbalance [Unknown]

NARRATIVE: CASE EVENT DATE: 2014
